FAERS Safety Report 25249390 (Version 1)
Quarter: 2025Q2

REPORT INFORMATION
  Report Type: Spontaneous
  Country: JP (occurrence: JP)
  Receive Date: 20250429
  Receipt Date: 20250429
  Transmission Date: 20250717
  Serious: Yes (Death, Hospitalization, Other)
  Sender: RANBAXY
  Company Number: JP-SUN PHARMACEUTICAL INDUSTRIES LTD-2025R1-505089

PATIENT
  Age: 77 Year
  Sex: Female

DRUGS (2)
  1. DEXAMETHASONE [Suspect]
     Active Substance: DEXAMETHASONE
     Indication: Cholangitis sclerosing
     Route: 065
  2. URSODIOL [Suspect]
     Active Substance: URSODIOL
     Indication: Cholangitis sclerosing
     Route: 048

REACTIONS (1)
  - Disease progression [Fatal]
